FAERS Safety Report 4679701-6 (Version None)
Quarter: 2005Q2

REPORT INFORMATION
  Report Type: 
  Country: None (occurrence: None)
  Receive Date: 20050531
  Receipt Date: 20050519
  Transmission Date: 20051028
  Serious: Yes (Other)
  Sender: FDA-Public Use
  Company Number: 2005076987

PATIENT
  Age: 67 Year
  Sex: Male
  Weight: 90.7194 kg

DRUGS (2)
  1. DILANTIN KAPSEAL [Suspect]
     Indication: CONVULSION
     Dosage: 100 MG (100 MG, 1 IN 1 D), ORAL
     Route: 048
     Dates: start: 19820101
  2. LITHIUM CARBONATE [Concomitant]

REACTIONS (1)
  - CONVULSION [None]
